FAERS Safety Report 13624833 (Version 2)
Quarter: 2017Q2

REPORT INFORMATION
  Report Type: Spontaneous
  Country: IT (occurrence: IT)
  Receive Date: 20170607
  Receipt Date: 20170630
  Transmission Date: 20170830
  Serious: Yes (Hospitalization)
  Sender: FDA-Public Use
  Company Number: IT-TEVA-773868ACC

PATIENT
  Age: 49 Year
  Sex: Female

DRUGS (1)
  1. ESTREVA GEL [Suspect]
     Active Substance: ESTRADIOL
     Indication: MENOPAUSE
     Dates: start: 201406

REACTIONS (1)
  - Seizure [Recovering/Resolving]
